FAERS Safety Report 15314086 (Version 1)
Quarter: 2018Q3

REPORT INFORMATION
  Report Type: Spontaneous
  Country: US (occurrence: US)
  Receive Date: 20180824
  Receipt Date: 20180824
  Transmission Date: 20181010
  Serious: Yes (Hospitalization, Other)
  Sender: FDA-Public Use
  Company Number: US-ACCORD-071074

PATIENT
  Age: 25 Year
  Sex: Male

DRUGS (8)
  1. DEXAMETHASONE. [Concomitant]
     Active Substance: DEXAMETHASONE
     Indication: ACUTE KIDNEY INJURY
  2. CYCLOPHOSPHAMIDE/CYCLOPHOSPHAMIDE MONOHYDRATE [Concomitant]
     Indication: ACUTE KIDNEY INJURY
  3. METHOTREXATE. [Suspect]
     Active Substance: METHOTREXATE
     Indication: BURKITT^S LYMPHOMA
  4. VINCRISTINE [Concomitant]
     Active Substance: VINCRISTINE
     Indication: ACUTE KIDNEY INJURY
  5. PEGFILGRASTIM [Concomitant]
     Active Substance: PEGFILGRASTIM
     Indication: NEUTROPENIA
  6. ETOPOSIDE/ETOPOSIDE PHOSPHATE [Concomitant]
     Indication: ACUTE KIDNEY INJURY
  7. DOXORUBICIN [Concomitant]
     Active Substance: DOXORUBICIN
     Indication: ACUTE KIDNEY INJURY
  8. RITUXIMAB. [Concomitant]
     Active Substance: RITUXIMAB
     Indication: ACUTE KIDNEY INJURY

REACTIONS (13)
  - Pancytopenia [Unknown]
  - Herpes dermatitis [Unknown]
  - Headache [Unknown]
  - Neutropenia [Recovering/Resolving]
  - Mucosal inflammation [Unknown]
  - Nausea [Recovering/Resolving]
  - Hyperglycaemia [Unknown]
  - Pneumonia [Unknown]
  - Pyrexia [Unknown]
  - Diarrhoea [Unknown]
  - Decreased appetite [Unknown]
  - Neuropathy peripheral [Unknown]
  - Hypertension [Unknown]
